FAERS Safety Report 16578230 (Version 1)
Quarter: 2019Q3

REPORT INFORMATION
  Report Type: Spontaneous
  Country: DE (occurrence: DE)
  Receive Date: 20190716
  Receipt Date: 20190716
  Transmission Date: 20191004
  Serious: Yes (Hospitalization, Other)
  Sender: FDA-Public Use
  Company Number: DE-FERRINGPH-2018FE07805

PATIENT
  Age: 45 Year
  Sex: Male
  Weight: 85 kg

DRUGS (6)
  1. MINIRIN [Suspect]
     Active Substance: DESMOPRESSIN ACETATE
     Indication: PRODUCT USED FOR UNKNOWN INDICATION
     Dosage: 240 ?G, 1-0-1-0
     Route: 048
  2. MONO-EMBOLEX [Concomitant]
     Active Substance: CERTOPARIN SODIUM
     Dosage: 3000 IE, 1-0-0-0, INJECTION- /INFUSION SOLUTION
     Route: 058
  3. PANTOPRAZOL                        /01263201/ [Concomitant]
     Active Substance: PANTOPRAZOLE
     Dosage: 20 MG, 1-0-0-0
     Route: 048
  4. IBUPROFEN. [Concomitant]
     Active Substance: IBUPROFEN
     Dosage: 600 MG, 1-1-1-0
     Route: 048
  5. LEVOTHYROXINE SODIUM. [Concomitant]
     Active Substance: LEVOTHYROXINE SODIUM
     Dosage: 75 ?G, 1-0-0-0
     Route: 048
  6. METAMIZOL                          /06276701/ [Concomitant]
     Active Substance: METAMIZOLE
     Dosage: 500 MG, 1-1-1-1
     Route: 048

REACTIONS (7)
  - Dyspepsia [Unknown]
  - Headache [Unknown]
  - Angina pectoris [Unknown]
  - Paraesthesia [Unknown]
  - Hyponatraemia [Unknown]
  - Product monitoring error [Unknown]
  - Hyporeflexia [Unknown]
